FAERS Safety Report 24710758 (Version 2)
Quarter: 2024Q4

REPORT INFORMATION
  Report Type: Spontaneous
  Country: CZ (occurrence: CZ)
  Receive Date: 20241209
  Receipt Date: 20241226
  Transmission Date: 20250115
  Serious: Yes (Hospitalization, Other)
  Sender: AUROBINDO
  Company Number: CZ-Orion Corporation ORION PHARMA-MIRZ2024-0013

PATIENT
  Age: 47 Year
  Sex: Female

DRUGS (5)
  1. PREGABALIN [Suspect]
     Active Substance: PREGABALIN
     Indication: Product used for unknown indication
     Dosage: STRENGTH: 150 MG
  2. DABIGATRAN [Suspect]
     Active Substance: DABIGATRAN
     Indication: Pulmonary embolism
     Dosage: STRENGTH: 300 MG
  3. ERENUMAB [Suspect]
     Active Substance: ERENUMAB
     Indication: Product used for unknown indication
     Dosage: UNK
     Route: 065
  4. MIRTAZAPINE [Suspect]
     Active Substance: MIRTAZAPINE
     Indication: Depression
     Dosage: 45 MILLIGRAM
     Route: 065
  5. VENLAFAXINE [Suspect]
     Active Substance: VENLAFAXINE HYDROCHLORIDE
     Indication: Product used for unknown indication
     Dosage: STRENGTH: 250 MG
     Route: 065

REACTIONS (2)
  - Suicidal ideation [Unknown]
  - Drug ineffective [Unknown]
